FAERS Safety Report 4770754-3 (Version None)
Quarter: 2005Q3

REPORT INFORMATION
  Report Type: 
  Country: None (occurrence: None)
  Receive Date: 20050914
  Receipt Date: 20050216
  Transmission Date: 20060218
  Serious: Yes (Hospitalization)
  Sender: FDA-Public Use
  Company Number: 2003113217

PATIENT
  Age: 47 Year
  Sex: Male
  Weight: 110 kg

DRUGS (4)
  1. ZIPRASIDONE (CAPS) (ZIPRASIDONE) [Suspect]
     Indication: SCHIZOPHRENIA
     Dosage: 140 MG (BID), ORAL
     Route: 048
     Dates: start: 20030920, end: 20031014
  2. PLACEBO (PLACEBO) [Suspect]
     Indication: SCHIZOPHRENIA
     Dosage: 0 MG (0 MG, 2 IN 1 D), ORAL
     Route: 048
  3. LORAZEPAM [Concomitant]
  4. TELMISARTAN (TELMISARTAN) [Concomitant]

REACTIONS (3)
  - ADVERSE EVENT [None]
  - ANXIETY [None]
  - HALLUCINATION [None]
